FAERS Safety Report 4987399-2 (Version None)
Quarter: 2006Q2

REPORT INFORMATION
  Report Type: 
  Country: None (occurrence: None)
  Receive Date: 20060501
  Receipt Date: 20050218
  Transmission Date: 20061013
  Serious: Yes (Hospitalization)
  Sender: FDA-Public Use
  Company Number: US-MERCK-0502USA02817

PATIENT
  Age: 63 Year
  Sex: Female
  Weight: 48 kg

DRUGS (11)
  1. VIOXX [Suspect]
     Indication: ARTHRITIS
     Route: 048
     Dates: start: 20020329, end: 20040226
  2. ESTRACE [Concomitant]
     Route: 065
  3. ATENOLOL [Concomitant]
     Route: 065
  4. FAMOTIDINE [Concomitant]
     Route: 065
  5. SEREVENT [Concomitant]
     Route: 065
  6. ATROVENT [Concomitant]
     Route: 065
  7. PENTOXIFYLLINE [Concomitant]
     Route: 065
  8. LESCOL [Concomitant]
     Route: 065
  9. ALBUTEROL [Concomitant]
     Route: 065
  10. ACTONEL [Concomitant]
     Route: 065
  11. CIMETIDINE [Concomitant]
     Route: 065

REACTIONS (6)
  - ANKLE BRACHIAL INDEX DECREASED [None]
  - CAROTID ARTERY STENOSIS [None]
  - HYPOTENSION [None]
  - INTRAOCULAR PRESSURE INCREASED [None]
  - LACUNAR INFARCTION [None]
  - VISION BLURRED [None]
